FAERS Safety Report 6305205-0 (Version None)
Quarter: 2009Q3

REPORT INFORMATION
  Report Type: 
  Country: None (occurrence: None)
  Receive Date: 20090810
  Receipt Date: 20090810
  Transmission Date: 20100115
  Serious: Yes (Other)
  Sender: FDA-Public Use
  Company Number: None

PATIENT
  Sex: Male
  Weight: 135.1719 kg

DRUGS (2)
  1. CLOZAPINE [Suspect]
     Indication: PSYCHOTIC DISORDER
     Dosage: 200MG BID (TWICE DAILY) PO (ORAL)
     Route: 048
     Dates: start: 20090602
  2. WELLBUTRIN SR [Suspect]
     Dosage: 150MG BID (TWICE DAILY) PO (ORAL)
     Route: 048
     Dates: start: 20090602

REACTIONS (1)
  - CONVULSION [None]
